FAERS Safety Report 8983328 (Version 1)
Quarter: 2012Q4

REPORT INFORMATION
  Report Type: 
  Country: US (occurrence: US)
  Receive Date: 20121224
  Receipt Date: 20121224
  Transmission Date: 20130627
  Serious: Yes (Hospitalization)
  Sender: FDA-Public Use
  Company Number: US-JNJFOC-20121208733

PATIENT
  Age: 23 Year
  Sex: Male

DRUGS (4)
  1. PALIPERIDONE [Suspect]
     Indication: SCHIZOAFFECTIVE DISORDER
     Route: 048
  2. ZIPRASIDONE [Suspect]
     Indication: SCHIZOAFFECTIVE DISORDER
     Route: 048
  3. HALDOL [Suspect]
     Indication: SCHIZOAFFECTIVE DISORDER
     Route: 065
  4. SEROQUEL [Suspect]
     Indication: SCHIZOAFFECTIVE DISORDER
     Route: 065

REACTIONS (1)
  - Rhabdomyolysis [Recovered/Resolved]
